FAERS Safety Report 11504859 (Version 1)
Quarter: 2015Q3

REPORT INFORMATION
  Report Type: Spontaneous
  Country: US (occurrence: US)
  Receive Date: 20150915
  Receipt Date: 20150915
  Transmission Date: 20151125
  Serious: No
  Sender: FDA-Public Use
  Company Number: US-ROCHE-693891

PATIENT
  Age: 49 Year
  Sex: Male

DRUGS (4)
  1. PEGASYS [Suspect]
     Active Substance: PEGINTERFERON ALFA-2A
     Indication: HEPATITIS C
     Dosage: PRE FILLED SYRINGE
     Route: 058
  2. TELAPREVIR [Suspect]
     Active Substance: TELAPREVIR
     Indication: HEPATITIS C
     Route: 065
  3. RIBAVIRIN. [Suspect]
     Active Substance: RIBAVIRIN
     Indication: HEPATITIS C
     Dosage: DIVIDED DOSES
     Route: 048
  4. BACTRIM [Concomitant]
     Active Substance: SULFAMETHOXAZOLE\TRIMETHOPRIM
     Indication: FURUNCLE
     Dosage: DRUG REPORTED AS: BACTRIM/ OXYCODONE 15 MG TABLET
     Route: 065

REACTIONS (6)
  - Fatigue [Recovering/Resolving]
  - Insomnia [Unknown]
  - Memory impairment [Unknown]
  - Pyrexia [Recovering/Resolving]
  - Drug ineffective [Unknown]
  - Respiration abnormal [Recovering/Resolving]

NARRATIVE: CASE EVENT DATE: 20100512
